FAERS Safety Report 11458347 (Version 1)
Quarter: 2015Q3

REPORT INFORMATION
  Report Type: Report from Study
  Country: BR (occurrence: BR)
  Receive Date: 20150904
  Receipt Date: 20150904
  Transmission Date: 20151125
  Serious: Yes (Death, Hospitalization, Other)
  Sender: FDA-Public Use
  Company Number: PHHY2015BR106180

PATIENT
  Age: 71 Year
  Sex: Male
  Weight: 70 kg

DRUGS (2)
  1. EXELON PATCH [Suspect]
     Active Substance: RIVASTIGMINE
     Indication: HYDROCEPHALUS
  2. EXELON PATCH [Suspect]
     Active Substance: RIVASTIGMINE
     Indication: DEMENTIA
     Dosage: 1 DF, QD
     Route: 062
     Dates: start: 201401, end: 201404

REACTIONS (5)
  - Pneumonia [Fatal]
  - Blister [Unknown]
  - Sepsis [Fatal]
  - Urinary tract infection [Recovered/Resolved]
  - Diabetes mellitus [Fatal]

NARRATIVE: CASE EVENT DATE: 201401
